FAERS Safety Report 14174968 (Version 1)
Quarter: 2017Q4

REPORT INFORMATION
  Report Type: Spontaneous
  Country: US (occurrence: US)
  Receive Date: 20171109
  Receipt Date: 20171109
  Transmission Date: 20180321
  Serious: No
  Sender: FDA-Public Use
  Company Number: US-ASTRAZENECA-2017SF13677

PATIENT
  Sex: Male

DRUGS (1)
  1. LYNPARZA [Suspect]
     Active Substance: OLAPARIB
     Indication: GENE MUTATION
     Route: 048

REACTIONS (4)
  - Diarrhoea [Unknown]
  - Anaemia [Unknown]
  - Off label use [Unknown]
  - Product use in unapproved indication [Unknown]
